FAERS Safety Report 9004782 (Version 1)
Quarter: 2013Q1

REPORT INFORMATION
  Report Type: Spontaneous
  Country: US (occurrence: None)
  Receive Date: 20130107
  Receipt Date: 20130107
  Transmission Date: 20140127
  Serious: Yes (Other)
  Sender: FDA-Public Use
  Company Number: None

PATIENT
  Age: 82 Year
  Sex: Female
  Weight: 54.1 kg

DRUGS (1)
  1. VISMODEGIB 150MG [Suspect]
     Dosage: 1 TABLET DAILY PO
     Route: 048
     Dates: start: 20121201, end: 20121219

REACTIONS (2)
  - Aspartate aminotransferase increased [None]
  - Alanine aminotransferase increased [None]
